FAERS Safety Report 5640079-2 (Version None)
Quarter: 2008Q1

REPORT INFORMATION
  Report Type: 
  Country: None (occurrence: None)
  Receive Date: 20080227
  Receipt Date: 20080127
  Transmission Date: 20080703
  Serious: No
  Sender: FDA-Public Use
  Company Number: US-BAYER-200812666NA

PATIENT
  Sex: Female

DRUGS (1)
  1. MIRENA [Suspect]
     Route: 015
     Dates: start: 20080112, end: 20080121

REACTIONS (4)
  - DEFAECATION URGENCY [None]
  - NAUSEA [None]
  - PELVIC PAIN [None]
  - SYNCOPE VASOVAGAL [None]
